APPROVED DRUG PRODUCT: PRADAXA
Active Ingredient: DABIGATRAN ETEXILATE MESYLATE
Strength: EQ 150MG BASE
Dosage Form/Route: CAPSULE;ORAL
Application: N022512 | Product #002 | TE Code: AB
Applicant: BOEHRINGER INGELHEIM PHARMACEUTICALS INC
Approved: Oct 19, 2010 | RLD: Yes | RS: Yes | Type: RX

PATENTS:
Patent 9034822 | Expires: Jan 20, 2031
Patent 7932273 | Expires: Sep 7, 2025
Patent 7932273*PED | Expires: Mar 7, 2026
Patent 9034822*PED | Expires: Jul 20, 2031